FAERS Safety Report 12921747 (Version 1)
Quarter: 2016Q4

REPORT INFORMATION
  Report Type: Spontaneous
  Country: US (occurrence: US)
  Receive Date: 20161108
  Receipt Date: 20161108
  Transmission Date: 20170207
  Serious: Yes (Other)
  Sender: FDA-Public Use
  Company Number: US-ACORDA-ACO_129981_2016

PATIENT
  Sex: Female

DRUGS (2)
  1. AMPYRA [Suspect]
     Active Substance: DALFAMPRIDINE
     Dosage: UNK
     Route: 065
  2. AMPYRA [Suspect]
     Active Substance: DALFAMPRIDINE
     Indication: PRODUCT USED FOR UNKNOWN INDICATION
     Dosage: UNK

REACTIONS (12)
  - Blindness [Unknown]
  - Fatigue [Unknown]
  - Sexual dysfunction [Unknown]
  - Urinary incontinence [Unknown]
  - Coordination abnormal [Recovered/Resolved]
  - Condition aggravated [Recovered/Resolved]
  - Disturbance in attention [Unknown]
  - Gait disturbance [Recovered/Resolved]
  - Constipation [Unknown]
  - Urinary retention [Unknown]
  - Pruritus [Unknown]
  - Therapy cessation [Unknown]
